FAERS Safety Report 9783010 (Version 1)
Quarter: 2013Q4

REPORT INFORMATION
  Report Type: Spontaneous
  Country: US (occurrence: None)
  Receive Date: 20131224
  Receipt Date: 20131224
  Transmission Date: 20140711
  Serious: Yes (Hospitalization)
  Sender: FDA-Public Use
  Company Number: None

PATIENT
  Age: 72 Year
  Sex: Male
  Weight: 74.84 kg

DRUGS (1)
  1. KYPROLIS [Suspect]
     Indication: PLASMA CELL MYELOMA
     Dosage: 38 MG 2 DAYS/ WEEK FOR 3 INTO A VEIN
     Route: 042
     Dates: start: 20131021, end: 20131120

REACTIONS (5)
  - Asthenia [None]
  - Atrial fibrillation [None]
  - Renal injury [None]
  - Plasma cell myeloma [None]
  - Condition aggravated [None]
